FAERS Safety Report 20964158 (Version 1)
Quarter: 2022Q2

REPORT INFORMATION
  Report Type: Spontaneous
  Country: US (occurrence: None)
  Receive Date: 20220615
  Receipt Date: 20220615
  Transmission Date: 20220720
  Serious: No
  Sender: FDA-Public Use
  Company Number: None

PATIENT
  Age: 57 Year
  Sex: Female

DRUGS (1)
  1. MOLNUPIRAVIR [Suspect]
     Active Substance: MOLNUPIRAVIR
     Indication: COVID-19
     Dosage: FREQUENCY : TWICE A DAY;?
     Route: 048

REACTIONS (7)
  - Dizziness [None]
  - Dizziness [None]
  - Paraesthesia [None]
  - Pruritus [None]
  - Peripheral swelling [None]
  - Rash [None]
  - Rash [None]

NARRATIVE: CASE EVENT DATE: 20220605
